FAERS Safety Report 6689340-3 (Version None)
Quarter: 2010Q2

REPORT INFORMATION
  Report Type: 
  Country: None (occurrence: None)
  Receive Date: 20100419
  Receipt Date: 20100419
  Transmission Date: 20101027
  Serious: Yes (Life-Threatening)
  Sender: FDA-Public Use
  Company Number: None

PATIENT
  Age: 39 Year
  Sex: Female
  Weight: 75 kg

DRUGS (4)
  1. SENSORCAINE [Suspect]
     Indication: CAESAREAN SECTION
     Dosage: 1.8ML X1 INTRATHECAL, 1.8 X1, INTRATHECAL
     Route: 037
     Dates: start: 20100413
  2. SENSORCAINE [Suspect]
     Indication: PREGNANCY
     Dosage: 1.8ML X1 INTRATHECAL, 1.8 X1, INTRATHECAL
     Route: 037
     Dates: start: 20100413
  3. SENSORCAINE [Suspect]
     Indication: CAESAREAN SECTION
     Dosage: 1.8ML X1 INTRATHECAL, 1.8 X1, INTRATHECAL
     Route: 037
     Dates: start: 20100413
  4. SENSORCAINE [Suspect]
     Indication: PREGNANCY
     Dosage: 1.8ML X1 INTRATHECAL, 1.8 X1, INTRATHECAL
     Route: 037
     Dates: start: 20100413

REACTIONS (1)
  - INADEQUATE ANALGESIA [None]
